FAERS Safety Report 4452951-X (Version None)
Quarter: 2004Q3

REPORT INFORMATION
  Report Type: 
  Country: None (occurrence: None)
  Receive Date: 20040916
  Receipt Date: 20040901
  Transmission Date: 20050211
  Serious: Yes (Hospitalization)
  Sender: FDA-Public Use
  Company Number: 2004-BP-07556RO

PATIENT
  Age: 78 Year
  Sex: Male

DRUGS (6)
  1. DEXAMETHASONE [Suspect]
     Indication: MULTIPLE MYELOMA
     Dosage: CYCLIC: 40 MG/DAY (NR), PO
     Route: 048
     Dates: start: 20030410, end: 20030427
  2. BACTRIM [Concomitant]
  3. LISINOPRIL [Concomitant]
  4. MULTIVITAMIN [Concomitant]
  5. PANTOPRAZOLE (PANTOPRAZOLE) [Concomitant]
  6. LANSOPRAZOLE [Concomitant]

REACTIONS (5)
  - HYPOCALCAEMIA [None]
  - HYPOMAGNESAEMIA [None]
  - HYPONATRAEMIA [None]
  - NEUTROPENIA [None]
  - UROSEPSIS [None]
